FAERS Safety Report 7543018-2 (Version None)
Quarter: 2011Q2

REPORT INFORMATION
  Report Type: 
  Country: None (occurrence: None)
  Receive Date: 20110613
  Receipt Date: 20110608
  Transmission Date: 20111010
  Serious: Yes (Death, Hospitalization)
  Sender: FDA-Public Use
  Company Number: PHHY2011BR23844

PATIENT
  Sex: Female

DRUGS (1)
  1. EXELON [Suspect]
     Indication: PULMONARY FIBROSIS
     Dosage: 18 MG/10CM^2 (1 PATCH A DAY )
     Route: 062

REACTIONS (7)
  - PULMONARY OEDEMA [None]
  - DYSPNOEA [None]
  - HYPERTENSION [None]
  - HAEMATEMESIS [None]
  - PNEUMONIA [None]
  - PULMONARY FIBROSIS [None]
  - SEPTIC SHOCK [None]
